FAERS Safety Report 9206552 (Version 2)
Quarter: 2013Q2

REPORT INFORMATION
  Report Type: Spontaneous
  Country: US (occurrence: US)
  Receive Date: 20130403
  Receipt Date: 20130409
  Transmission Date: 20140414
  Serious: Yes (Hospitalization, Other)
  Sender: FDA-Public Use
  Company Number: US-BAYER-2013-041038

PATIENT
  Age: 40 Year
  Sex: Female

DRUGS (8)
  1. OCELLA [Suspect]
     Dosage: UNK
     Dates: start: 200904, end: 201005
  2. SINGULAIR [Concomitant]
  3. FLONASE [Concomitant]
  4. LOVANZA [Concomitant]
  5. SIMVASTIN [Concomitant]
  6. PROTOPIC [Concomitant]
  7. QVAR [Concomitant]
  8. FLUTICASONE [Concomitant]

REACTIONS (7)
  - Deep vein thrombosis [None]
  - Deep vein thrombosis [Recovered/Resolved]
  - Thrombophlebitis superficial [Recovered/Resolved]
  - Injury [None]
  - Pain [None]
  - Emotional distress [None]
  - Pain [None]
